FAERS Safety Report 9705594 (Version 1)
Quarter: 2013Q4

REPORT INFORMATION
  Report Type: Spontaneous
  Country: US (occurrence: US)
  Receive Date: 20131122
  Receipt Date: 20131122
  Transmission Date: 20140711
  Serious: No
  Sender: FDA-Public Use
  Company Number: US-GILEAD-2008-0017141

PATIENT
  Age: 78 Year
  Sex: Female

DRUGS (8)
  1. LETAIRIS [Suspect]
     Indication: PULMONARY ARTERIAL HYPERTENSION
     Route: 048
     Dates: end: 20080611
  2. LETAIRIS [Suspect]
     Route: 048
     Dates: start: 20080611
  3. CELEXA [Concomitant]
  4. TOPROL XL [Concomitant]
  5. TORASEMIDE [Concomitant]
  6. COUMADIN [Concomitant]
  7. SYNTHROID [Concomitant]
  8. BENICAR [Concomitant]

REACTIONS (5)
  - Blood pressure decreased [None]
  - Dizziness [None]
  - Asthenia [None]
  - Orbital oedema [None]
  - Generalised oedema [None]
